FAERS Safety Report 5786042-2 (Version None)
Quarter: 2008Q2

REPORT INFORMATION
  Report Type: 
  Country: None (occurrence: None)
  Receive Date: 20080620
  Receipt Date: 20080620
  Transmission Date: 20081010
  Serious: Yes (Hospitalization)
  Sender: FDA-Public Use
  Company Number: None

PATIENT
  Age: 75 Year
  Sex: Male
  Weight: 80.2867 kg

DRUGS (5)
  1. VENOFER [Suspect]
     Indication: IRON DEFICIENCY
     Dosage: 100 MG/DAY QD FOR 3 DAYS IV DRIP
     Route: 041
     Dates: start: 20080611, end: 20080611
  2. ASPIRIN [Concomitant]
  3. PANTOPRAZOLE SODIUM [Concomitant]
  4. ENOXAPARIN SODIUM [Concomitant]
  5. CLOPIDOGREL BISULFATE [Concomitant]

REACTIONS (3)
  - CONDITION AGGRAVATED [None]
  - DRUG HYPERSENSITIVITY [None]
  - DYSPNOEA [None]
